FAERS Safety Report 9509731 (Version 1)
Quarter: 2013Q3

REPORT INFORMATION
  Report Type: Spontaneous
  Country: US (occurrence: US)
  Receive Date: 20130909
  Receipt Date: 20130909
  Transmission Date: 20140515
  Serious: No
  Sender: FDA-Public Use
  Company Number: US-BRISTOL-MYERS SQUIBB COMPANY-18889782

PATIENT
  Age: 68 Year
  Sex: Female
  Weight: 73.47 kg

DRUGS (3)
  1. ABILIFY [Suspect]
     Indication: BIPOLAR I DISORDER
     Dosage: DOSE:5MG BID
  2. ABILIFY [Suspect]
     Indication: BIPOLAR DISORDER
     Dosage: DOSE:5MG BID
  3. ABILIFY [Suspect]
     Indication: DELUSION
     Dosage: DOSE:5MG BID

REACTIONS (1)
  - Psychomotor hyperactivity [Unknown]
